FAERS Safety Report 11272872 (Version 1)
Quarter: 2015Q3

REPORT INFORMATION
  Report Type: Spontaneous
  Country: CN (occurrence: None)
  Receive Date: 20150714
  Receipt Date: 20150714
  Transmission Date: 20151125
  Serious: Yes (Disabling)
  Sender: FDA-Public Use
  Company Number: None

PATIENT
  Age: 29 Year
  Sex: Female
  Weight: 78.02 kg

DRUGS (8)
  1. LEVOFLOXACIN. [Suspect]
     Active Substance: LEVOFLOXACIN
     Indication: STREPTOCOCCAL INFECTION
     Dates: start: 20150701, end: 20150707
  2. MULTIVITAMIN [Concomitant]
     Active Substance: VITAMINS
  3. EFFERVESCENT VIT.C [Concomitant]
  4. SUPER B COMPLEX [Concomitant]
     Active Substance: CYANOCOBALAMIN\DEXPANTHENOL\NIACINAMIDE\PYRIDOXINE HYDROCHLORIDE\RIBOFLAVIN 5^-PHOSPHATE SODIUM\THIAMINE HYDROCHLORIDE\VITAMIN B COMPLEX
  5. EVENING PRMROSE OIL [Concomitant]
  6. MELATONIN [Concomitant]
     Active Substance: MELATONIN
  7. LEVOFLOXACIN. [Suspect]
     Active Substance: LEVOFLOXACIN
     Indication: TONSILLITIS
     Dates: start: 20150701, end: 20150707
  8. FISH OIL [Concomitant]
     Active Substance: FISH OIL

REACTIONS (7)
  - Pain in extremity [None]
  - Peripheral swelling [None]
  - Arthralgia [None]
  - Joint swelling [None]
  - Hypoaesthesia [None]
  - Paraesthesia [None]
  - Musculoskeletal discomfort [None]

NARRATIVE: CASE EVENT DATE: 20150707
